FAERS Safety Report 5129832-1 (Version None)
Quarter: 2006Q4

REPORT INFORMATION
  Report Type: 
  Country: None (occurrence: None)
  Receive Date: 20061018
  Receipt Date: 20061005
  Transmission Date: 20070319
  Serious: Yes (Other)
  Sender: FDA-Public Use
  Company Number: PHEH2006US12606

PATIENT
  Sex: Male

DRUGS (1)
  1. ZOMETA [Suspect]
     Indication: PROSTATE CANCER
     Dates: start: 20030409

REACTIONS (5)
  - ENDODONTIC PROCEDURE [None]
  - JAW DISORDER [None]
  - NERVOUS SYSTEM DISORDER [None]
  - PAIN IN JAW [None]
  - TOOTH EXTRACTION [None]
